FAERS Safety Report 26159187 (Version 1)
Quarter: 2025Q4

REPORT INFORMATION
  Report Type: Report from Study
  Country: US (occurrence: US)
  Receive Date: 20251216
  Receipt Date: 20251216
  Transmission Date: 20260117
  Serious: Yes (Other)
  Sender: GLAXOSMITHKLINE
  Company Number: US-GSK-US2025158320

PATIENT
  Age: 75 Year
  Sex: Female

DRUGS (1)
  1. MEPOLIZUMAB [Suspect]
     Active Substance: MEPOLIZUMAB
     Indication: Asthma
     Dosage: 100 MG

REACTIONS (14)
  - Thyroidectomy [Unknown]
  - Knee operation [Unknown]
  - Nasopharyngitis [Not Recovered/Not Resolved]
  - Aphonia [Unknown]
  - Arthritis [Unknown]
  - Gait disturbance [Unknown]
  - Dizziness [Unknown]
  - Dyspnoea [Unknown]
  - Osteoporosis [Unknown]
  - Musculoskeletal discomfort [Unknown]
  - Intervertebral disc degeneration [Unknown]
  - Sensation of foreign body [Unknown]
  - Speech disorder [Unknown]
  - Lung disorder [Unknown]

NARRATIVE: CASE EVENT DATE: 20250301
